FAERS Safety Report 8991260 (Version 2)
Quarter: 2013Q1

REPORT INFORMATION
  Report Type: Spontaneous
  Country: GB (occurrence: GB)
  Receive Date: 20121231
  Receipt Date: 20130111
  Transmission Date: 20140127
  Serious: Yes (Hospitalization, Other)
  Sender: FDA-Public Use
  Company Number: GB-ACCORD-015710

PATIENT
  Age: 1 Hour
  Sex: Male
  Weight: 3.03 kg

DRUGS (3)
  1. CITALOPRAM [Concomitant]
     Route: 064
  2. CANNABIS [Concomitant]
     Route: 064
  3. QUETIAPINE FUMARATE [Suspect]
     Route: 064
     Dates: start: 20120201, end: 20120729

REACTIONS (2)
  - Somnolence [Recovered/Resolved]
  - Foetal exposure timing unspecified [Unknown]
